FAERS Safety Report 6442425-9 (Version None)
Quarter: 2009Q4

REPORT INFORMATION
  Report Type: 
  Country: None (occurrence: None)
  Receive Date: 20091112
  Receipt Date: 20091029
  Transmission Date: 20100525
  Serious: Yes (Other)
  Sender: FDA-Public Use
  Company Number: 1000009433

PATIENT
  Sex: Female

DRUGS (4)
  1. ESCITALOPRAM [Suspect]
     Indication: CONTRACEPTION
     Dosage: 1 TABLET DAILY, ORAL, 2 TABLETS DAILY, ORAL
     Route: 048
     Dates: start: 20090101, end: 20090501
  2. ESCITALOPRAM [Suspect]
     Indication: CONTRACEPTION
     Dosage: 1 TABLET DAILY, ORAL, 2 TABLETS DAILY, ORAL
     Route: 048
     Dates: start: 20090501
  3. CERACETTE [Suspect]
     Indication: CONTRACEPTION
     Dosage: ORAL
     Route: 048
     Dates: start: 20050101
  4. CEFALORIDINE [Suspect]

REACTIONS (4)
  - DRUG INTERACTION [None]
  - EPISTAXIS [None]
  - INCREASED TENDENCY TO BRUISE [None]
  - METRORRHAGIA [None]
